FAERS Safety Report 7768394-7 (Version None)
Quarter: 2011Q3

REPORT INFORMATION
  Report Type: 
  Country: None (occurrence: None)
  Receive Date: 20110922
  Receipt Date: 20110629
  Transmission Date: 20111222
  Serious: No
  Sender: FDA-Public Use
  Company Number: US-ASTRAZENECA-2011SE39044

PATIENT
  Age: 55 Year
  Sex: Male
  Weight: 99.8 kg

DRUGS (6)
  1. CELEXA [Concomitant]
     Indication: DEPRESSION
  2. PEPCID [Concomitant]
     Indication: GASTROOESOPHAGEAL REFLUX DISEASE
  3. SEROQUEL XR [Suspect]
     Route: 048
  4. SEROQUEL XR [Suspect]
     Route: 048
  5. SEROQUEL XR [Suspect]
     Indication: MAJOR DEPRESSION
     Route: 048
  6. SEROQUEL XR [Suspect]
     Indication: SLEEP DISORDER
     Route: 048

REACTIONS (4)
  - HYPERPHAGIA [None]
  - INSOMNIA [None]
  - DRUG DOSE OMISSION [None]
  - HYPERSOMNIA [None]
